FAERS Safety Report 16977829 (Version 2)
Quarter: 2020Q1

REPORT INFORMATION
  Report Type: Report from Study
  Country: CO (occurrence: CO)
  Receive Date: 20191031
  Receipt Date: 20200311
  Transmission Date: 20200409
  Serious: Yes (Hospitalization)
  Sender: FDA-Public Use
  Company Number: CO-ROCHE-2412859

PATIENT
  Sex: Male

DRUGS (5)
  1. TRIMETHOPRIM. [Concomitant]
     Active Substance: TRIMETHOPRIM
  2. TACROLIMUS. [Concomitant]
     Active Substance: TACROLIMUS
  3. OMEPRAZOLE. [Concomitant]
     Active Substance: OMEPRAZOLE
  4. CELLCEPT [Suspect]
     Active Substance: MYCOPHENOLATE MOFETIL\MYCOPHENOLATE MOFETIL HYDROCHLORIDE
     Indication: PRODUCT USED FOR UNKNOWN INDICATION
     Dosage: THREE TABLETS PER DAY
     Route: 048
  5. PREDNISOLONE. [Concomitant]
     Active Substance: PREDNISOLONE

REACTIONS (8)
  - Weight decreased [Recovering/Resolving]
  - Blood potassium increased [Recovered/Resolved]
  - Renal disorder [Unknown]
  - Malaise [Unknown]
  - Viral infection [Recovering/Resolving]
  - Blood creatinine increased [Recovered/Resolved]
  - Kidney enlargement [Unknown]
  - Immunodeficiency [Recovering/Resolving]
